FAERS Safety Report 15680181 (Version 1)
Quarter: 2018Q4

REPORT INFORMATION
  Report Type: Spontaneous
  Country: DE (occurrence: DE)
  Receive Date: 20181203
  Receipt Date: 20181203
  Transmission Date: 20190205
  Serious: Yes (Hospitalization, Other)
  Sender: FDA-Public Use
  Company Number: DE-FERRINGPH-2018FE06750

PATIENT

DRUGS (1)
  1. PICOPREP [Suspect]
     Active Substance: ANHYDROUS CITRIC ACID\MAGNESIUM OXIDE\SODIUM PICOSULFATE
     Indication: COMPUTERISED TOMOGRAM INTESTINE
     Dosage: TAKEN IN THE EVENING WITH 2.5 LITRES OF FLUID
     Route: 065

REACTIONS (11)
  - Syncope [Unknown]
  - Fall [Unknown]
  - Vomiting [Unknown]
  - Product use in unapproved indication [Unknown]
  - Dehydration [Unknown]
  - Abdominal pain lower [Unknown]
  - Loss of consciousness [Unknown]
  - Oesophagitis [Unknown]
  - Abnormal faeces [Unknown]
  - Head injury [Unknown]
  - Off label use [Unknown]

NARRATIVE: CASE EVENT DATE: 201810
